FAERS Safety Report 20356233 (Version 3)
Quarter: 2022Q1

REPORT INFORMATION
  Report Type: Report from Study
  Country: US (occurrence: US)
  Receive Date: 20220120
  Receipt Date: 20220308
  Transmission Date: 20220423
  Serious: Yes (Hospitalization)
  Sender: FDA-Public Use
  Company Number: US-TAKEDA-2021TUS023045

PATIENT
  Age: 11 Year
  Sex: Male
  Weight: 35 kg

DRUGS (21)
  1. TEDUGLUTIDE [Suspect]
     Active Substance: TEDUGLUTIDE
     Indication: Gastrointestinal disorder
     Dosage: 1.65 MILLIGRAM, QD
     Route: 058
     Dates: start: 20210311
  2. TEDUGLUTIDE [Suspect]
     Active Substance: TEDUGLUTIDE
     Indication: Gastrointestinal disorder
     Dosage: 1.65 MILLIGRAM, QD
     Route: 058
     Dates: start: 20210311
  3. TEDUGLUTIDE [Suspect]
     Active Substance: TEDUGLUTIDE
     Indication: Gastrointestinal disorder
     Dosage: 1.65 MILLIGRAM, QD
     Route: 058
     Dates: start: 20210311
  4. TEDUGLUTIDE [Suspect]
     Active Substance: TEDUGLUTIDE
     Indication: Gastrointestinal disorder
     Dosage: 1.65 MILLIGRAM, QD
     Route: 058
     Dates: start: 20210311
  5. TEDUGLUTIDE [Suspect]
     Active Substance: TEDUGLUTIDE
     Indication: Short-bowel syndrome
     Dosage: 1.65 MILLIGRAM, QD
     Route: 058
     Dates: start: 20110309
  6. TEDUGLUTIDE [Suspect]
     Active Substance: TEDUGLUTIDE
     Indication: Short-bowel syndrome
     Dosage: 1.65 MILLIGRAM, QD
     Route: 058
     Dates: start: 20110309
  7. TEDUGLUTIDE [Suspect]
     Active Substance: TEDUGLUTIDE
     Indication: Short-bowel syndrome
     Dosage: 1.65 MILLIGRAM, QD
     Route: 058
     Dates: start: 20110309
  8. TEDUGLUTIDE [Suspect]
     Active Substance: TEDUGLUTIDE
     Indication: Short-bowel syndrome
     Dosage: 1.65 MILLIGRAM, QD
     Route: 058
     Dates: start: 20110309
  9. TEDUGLUTIDE [Suspect]
     Active Substance: TEDUGLUTIDE
     Dosage: 1.65 MILLIGRAM, QD
     Route: 058
     Dates: start: 20210310
  10. TEDUGLUTIDE [Suspect]
     Active Substance: TEDUGLUTIDE
     Dosage: 1.65 MILLIGRAM, QD
     Route: 058
     Dates: start: 20210310
  11. TEDUGLUTIDE [Suspect]
     Active Substance: TEDUGLUTIDE
     Dosage: 1.65 MILLIGRAM, QD
     Route: 058
     Dates: start: 20210310
  12. TEDUGLUTIDE [Suspect]
     Active Substance: TEDUGLUTIDE
     Dosage: 1.65 MILLIGRAM, QD
     Route: 058
     Dates: start: 20210310
  13. TEDUGLUTIDE [Suspect]
     Active Substance: TEDUGLUTIDE
     Dosage: 1.65 MILLIGRAM, QD
     Route: 058
     Dates: start: 202103
  14. TEDUGLUTIDE [Suspect]
     Active Substance: TEDUGLUTIDE
     Dosage: 1.65 MILLIGRAM, QD
     Route: 058
     Dates: start: 202103
  15. TEDUGLUTIDE [Suspect]
     Active Substance: TEDUGLUTIDE
     Dosage: 1.65 MILLIGRAM, QD
     Route: 058
     Dates: start: 202103
  16. TEDUGLUTIDE [Suspect]
     Active Substance: TEDUGLUTIDE
     Dosage: 1.65 MILLIGRAM, QD
     Route: 058
     Dates: start: 202103
  17. TEDUGLUTIDE [Suspect]
     Active Substance: TEDUGLUTIDE
     Dosage: 1.65 MILLIGRAM, QD
     Route: 058
     Dates: start: 20210310, end: 20220223
  18. TEDUGLUTIDE [Suspect]
     Active Substance: TEDUGLUTIDE
     Dosage: 1.65 MILLIGRAM, QD
     Route: 058
     Dates: start: 20210310, end: 20220223
  19. TEDUGLUTIDE [Suspect]
     Active Substance: TEDUGLUTIDE
     Dosage: 1.65 MILLIGRAM, QD
     Route: 058
     Dates: start: 20210310, end: 20220223
  20. TEDUGLUTIDE [Suspect]
     Active Substance: TEDUGLUTIDE
     Dosage: 1.65 MILLIGRAM, QD
     Route: 058
     Dates: start: 20210310, end: 20220223
  21. TPN [Concomitant]
     Active Substance: AMINO ACIDS\DEXTROSE\ELECTROLYTES NOS\SOYBEAN OIL
     Dosage: UNK
     Route: 065

REACTIONS (9)
  - Pyrexia [Recovered/Resolved]
  - Diarrhoea [Unknown]
  - Gastrointestinal bacterial overgrowth [Unknown]
  - Condition aggravated [Unknown]
  - Therapeutic product effect decreased [Unknown]
  - Product administration error [Recovered/Resolved]
  - Weight decreased [Unknown]
  - Gastrointestinal disorder [Unknown]
  - Complication associated with device [Unknown]

NARRATIVE: CASE EVENT DATE: 20210408
